FAERS Safety Report 5512221-5 (Version None)
Quarter: 2007Q4

REPORT INFORMATION
  Report Type: 
  Country: None (occurrence: None)
  Receive Date: 20071112
  Receipt Date: 20071105
  Transmission Date: 20080405
  Serious: Yes (Life-Threatening, Other)
  Sender: FDA-Public Use
  Company Number: PHBS2007JP17703

PATIENT
  Age: 25 Year
  Sex: Female

DRUGS (7)
  1. RITALIN [Suspect]
     Indication: DEPRESSION
     Dosage: 40 MG/DAY
     Route: 048
  2. ANAFRANIL [Concomitant]
     Dosage: 150 MG/DAY
     Route: 048
  3. RYO-KEI-ZYUTU-KAN-TO [Concomitant]
     Dosage: 7.5 G/DAY
     Route: 048
  4. LEXOTAN [Concomitant]
     Dosage: 20 MG/DAY
     Route: 048
  5. SOLANAX [Concomitant]
     Dosage: 0.8 MG/DAY
     Route: 048
  6. LENDORMIN [Concomitant]
     Dosage: 0.5 MG/DAY
     Route: 048
  7. HALCION [Concomitant]
     Dosage: 0.25 MG/DAY
     Route: 048

REACTIONS (6)
  - ABNORMAL BEHAVIOUR [None]
  - AGITATION [None]
  - CRYING [None]
  - INJURY [None]
  - SLEEP PHASE RHYTHM DISTURBANCE [None]
  - SUICIDE ATTEMPT [None]
